FAERS Safety Report 8930366 (Version 1)
Quarter: 2012Q4

REPORT INFORMATION
  Report Type: 
  Country: CA (occurrence: CA)
  Receive Date: 20121128
  Receipt Date: 20121128
  Transmission Date: 20130627
  Serious: Yes (Other)
  Sender: FDA-Public Use
  Company Number: CA-ROCHE-1160397

PATIENT

DRUGS (1)
  1. XOLAIR [Suspect]
     Indication: PRODUCT USED FOR UNKNOWN INDICATION
     Route: 058
     Dates: start: 20050526

REACTIONS (5)
  - Asthma [Unknown]
  - Hypersensitivity [Unknown]
  - Throat irritation [Unknown]
  - Rhinorrhoea [Unknown]
  - Nasal discomfort [Unknown]
